FAERS Safety Report 13661143 (Version 1)
Quarter: 2017Q2

REPORT INFORMATION
  Report Type: Report from Study
  Country: US (occurrence: US)
  Receive Date: 20170616
  Receipt Date: 20170616
  Transmission Date: 20170830
  Serious: No
  Sender: FDA-Public Use
  Company Number: US-US WORLDMEDS, LLC-USW201703-000378

PATIENT
  Age: 76 Year
  Sex: Male
  Weight: 66.22 kg

DRUGS (3)
  1. CARBIDOPA-LEVODOPA [Concomitant]
     Active Substance: CARBIDOPA\LEVODOPA
  2. APOKYN [Suspect]
     Active Substance: APOMORPHINE HYDROCHLORIDE
     Indication: PARKINSON^S DISEASE
     Route: 058
     Dates: start: 20160315
  3. CARBI-LEVO ENTACAPONE [Concomitant]

REACTIONS (4)
  - Bradykinesia [Recovered/Resolved]
  - Drooling [Recovered/Resolved]
  - Asthenia [Recovered/Resolved]
  - Slow speech [Recovered/Resolved]

NARRATIVE: CASE EVENT DATE: 20170307
